FAERS Safety Report 7461395-8 (Version None)
Quarter: 2011Q2

REPORT INFORMATION
  Report Type: 
  Country: None (occurrence: None)
  Receive Date: 20110506
  Receipt Date: 20110426
  Transmission Date: 20111010
  Serious: Yes (Death, Hospitalization)
  Sender: FDA-Public Use
  Company Number: ES-CELGENEUS-144-21880-11043198

PATIENT
  Sex: Male

DRUGS (2)
  1. REVLIMID [Suspect]
     Route: 065
  2. DEXAMETHASONE [Concomitant]
     Route: 065

REACTIONS (2)
  - UROSEPSIS [None]
  - FEMUR FRACTURE [None]
